FAERS Safety Report 13025649 (Version 4)
Quarter: 2017Q3

REPORT INFORMATION
  Report Type: Spontaneous
  Country: DE (occurrence: DE)
  Receive Date: 20161214
  Receipt Date: 20170816
  Transmission Date: 20171127
  Serious: Yes (Other)
  Sender: FDA-Public Use
  Company Number: DE-AMGEN-DEUSP2016175569

PATIENT
  Age: 59 Year
  Sex: Female
  Weight: 101 kg

DRUGS (6)
  1. IMLYGIC [Suspect]
     Active Substance: TALIMOGENE LAHERPAREPVEC
     Dosage: 4 ML, UNK
     Route: 058
     Dates: start: 20160915, end: 20160915
  2. IMLYGIC [Suspect]
     Active Substance: TALIMOGENE LAHERPAREPVEC
     Indication: METASTATIC MALIGNANT MELANOMA
     Dosage: 4 ML, UNK (10 TO 8, 4 ML 100 MIO PFU/ML)
     Route: 058
     Dates: start: 20160825
  3. IMLYGIC [Suspect]
     Active Substance: TALIMOGENE LAHERPAREPVEC
     Dosage: 4 ML, UNK
     Route: 058
     Dates: start: 20160929, end: 20160929
  4. IMLYGIC [Suspect]
     Active Substance: TALIMOGENE LAHERPAREPVEC
     Dosage: 4 ML, UNK
     Route: 058
     Dates: start: 20161027, end: 20161027
  5. PIROXICAM. [Concomitant]
     Active Substance: PIROXICAM
     Indication: PAIN
     Dosage: UNK UNK, AS NECESSARY
     Dates: start: 20100830
  6. IMLYGIC [Suspect]
     Active Substance: TALIMOGENE LAHERPAREPVEC
     Dosage: 4 ML, UNK
     Route: 058
     Dates: start: 20161110, end: 20161110

REACTIONS (6)
  - Metastases to liver [Not Recovered/Not Resolved]
  - Metastases to lung [Not Recovered/Not Resolved]
  - Oral herpes [Recovered/Resolved]
  - Pyrexia [Not Recovered/Not Resolved]
  - Metastatic malignant melanoma [Not Recovered/Not Resolved]
  - Diarrhoea [Unknown]

NARRATIVE: CASE EVENT DATE: 2016
